FAERS Safety Report 8384780-9 (Version None)
Quarter: 2012Q2

REPORT INFORMATION
  Report Type: 
  Country: None (occurrence: None)
  Receive Date: 20120524
  Receipt Date: 20120514
  Transmission Date: 20120825
  Serious: Yes (Hospitalization)
  Sender: FDA-Public Use
  Company Number: SE-FRI-1000030713

PATIENT
  Age: 47 Year
  Sex: Male

DRUGS (3)
  1. ESCITALOPRAM [Suspect]
     Dosage: OVERDOSE: 120 MG
     Dates: start: 20120511, end: 20120513
  2. ESCITALOPRAM [Suspect]
     Indication: SOCIAL PHOBIA
     Dosage: 20 MG
     Route: 048
  3. ESCITALOPRAM [Suspect]
     Dosage: OVERDOSE: 120 MG

REACTIONS (3)
  - MENTAL DISORDER [None]
  - INTENTIONAL OVERDOSE [None]
  - INSOMNIA [None]
